FAERS Safety Report 8591226-4 (Version None)
Quarter: 2012Q3

REPORT INFORMATION
  Report Type: 
  Country: None (occurrence: None)
  Receive Date: 20120813
  Receipt Date: 20120730
  Transmission Date: 20120928
  Serious: Yes (Other)
  Sender: FDA-Public Use
  Company Number: US-ROCHE-1095254

PATIENT
  Sex: Male

DRUGS (3)
  1. PEGASYS [Suspect]
     Indication: HEPATITIS C
     Dates: start: 20120601
  2. TELAPREVIR [Suspect]
     Indication: HEPATITIS C
     Dates: start: 20120601
  3. RIBAVIRIN [Suspect]
     Indication: HEPATITIS C
     Dates: start: 20120601

REACTIONS (4)
  - PRESYNCOPE [None]
  - ANAEMIA [None]
  - PLATELET COUNT DECREASED [None]
  - HAEMORRHAGE URINARY TRACT [None]
